FAERS Safety Report 18362238 (Version 1)
Quarter: 2020Q4

REPORT INFORMATION
  Report Type: Report from Study
  Country: JP (occurrence: JP)
  Receive Date: 20201009
  Receipt Date: 20201009
  Transmission Date: 20210114
  Serious: Yes (Hospitalization)
  Sender: FDA-Public Use
  Company Number: JP-CELLTRION INC.-2020JP028524

PATIENT

DRUGS (3)
  1. TRASTUZUMAB BS FOR I.V. INFUSION [NK] [Suspect]
     Active Substance: TRASTUZUMAB
     Indication: HER2 POSITIVE GASTRIC CANCER
     Dosage: 8 MILLIGRAM/SQ. METER, QD
     Route: 041
     Dates: start: 20200918
  2. OXALIPLATIN I.V. INFUSION SOLUTION 100MG[NK] (OXALIPLATIN) [Suspect]
     Active Substance: OXALIPLATIN
     Indication: HER2 POSITIVE GASTRIC CANCER
     Dosage: 130 MILLIGRAM/SQ. METER, QD
     Route: 041
     Dates: start: 20200918
  3. S-1TAIHO OD [Suspect]
     Active Substance: GIMERACIL\OTERACIL\TEGAFUR
     Indication: HER2 POSITIVE GASTRIC CANCER
     Dosage: 50 MG, BID
     Route: 048
     Dates: start: 20200918, end: 20200927

REACTIONS (2)
  - Product use issue [Unknown]
  - Decreased appetite [Not Recovered/Not Resolved]

NARRATIVE: CASE EVENT DATE: 20200928
